FAERS Safety Report 19332609 (Version 2)
Quarter: 2021Q2

REPORT INFORMATION
  Report Type: Other
  Country: US (occurrence: US)
  Receive Date: 20210529
  Receipt Date: 20210601
  Transmission Date: 20210717
  Serious: Yes (Hospitalization, Other)
  Sender: FDA-Public Use
  Company Number: US-NOVA LABORATORIES LIMITED-2112126

PATIENT
  Age: 8 Year
  Sex: Male

DRUGS (4)
  1. METHOTREXATE. [Suspect]
     Active Substance: METHOTREXATE
  2. VINCRISTINE [Suspect]
     Active Substance: VINCRISTINE
  3. PURIXAN [Suspect]
     Active Substance: MERCAPTOPURINE
     Indication: ACUTE LYMPHOCYTIC LEUKAEMIA
     Route: 048
  4. LEUCOVORINE (CALCIUM FOLINATE) [Suspect]
     Active Substance: LEUCOVORIN CALCIUM

REACTIONS (2)
  - Pancytopenia [Unknown]
  - Serum ferritin increased [Recovering/Resolving]
